FAERS Safety Report 15884693 (Version 1)
Quarter: 2019Q1

REPORT INFORMATION
  Report Type: Spontaneous
  Country: US (occurrence: US)
  Receive Date: 20190129
  Receipt Date: 20190129
  Transmission Date: 20190417
  Serious: Yes (Hospitalization)
  Sender: FDA-Public Use
  Company Number: US-AMREGENT-20182420

PATIENT
  Age: 79 Year
  Sex: Female

DRUGS (6)
  1. INJECTAFER [Suspect]
     Active Substance: FERRIC CARBOXYMALTOSE
     Dosage: UNKNOWN
     Route: 042
     Dates: start: 20181113, end: 20181120
  2. NO DRUG NAME [Concomitant]
     Dosage: UNKNOWN
     Route: 065
  3. NO DRUG NAME [Concomitant]
     Dosage: UNKNOWN
     Route: 048
  4. NO DRUG NAME [Concomitant]
     Dosage: UNKNOWN
     Route: 065
  5. CYANOCOBALAMIN. [Concomitant]
     Active Substance: CYANOCOBALAMIN
     Dosage: UNKNOWN
     Route: 051
  6. ALBUTEROL. [Concomitant]
     Active Substance: ALBUTEROL
     Dosage: UNKNOWN
     Route: 065

REACTIONS (13)
  - Repetitive speech [Unknown]
  - Confusional state [Unknown]
  - Cardiac disorder [Unknown]
  - Unresponsive to stimuli [Unknown]
  - Decreased appetite [Recovered/Resolved]
  - Product quality issue [Unknown]
  - Refusal of treatment by patient [Unknown]
  - Dyspnoea [Recovered/Resolved]
  - Weight decreased [Unknown]
  - Abnormal behaviour [Unknown]
  - Seizure [Unknown]
  - Lung disorder [Recovered/Resolved]
  - Mania [Unknown]

NARRATIVE: CASE EVENT DATE: 201811
